FAERS Safety Report 7765614-X (Version None)
Quarter: 2011Q3

REPORT INFORMATION
  Report Type: 
  Country: None (occurrence: None)
  Receive Date: 20110921
  Receipt Date: 20110916
  Transmission Date: 20111222
  Serious: Yes (Other)
  Sender: FDA-Public Use
  Company Number: PHEH2011US03871

PATIENT
  Sex: Male
  Weight: 65.5 kg

DRUGS (7)
  1. AFINITOR [Suspect]
     Indication: NEOPLASM MALIGNANT
     Dosage: 10 MG, UNK
     Dates: start: 20110720
  2. LISINOPRIL [Concomitant]
     Dosage: 10 MG, UNK
     Route: 048
  3. LEVEMIR [Concomitant]
     Indication: DIABETES MELLITUS
     Dosage: UNK UKN, UNK
     Route: 058
  4. NOVOLOG [Concomitant]
     Indication: DIABETES MELLITUS
     Dosage: UNK UKN, UNK
     Route: 058
  5. AFINITOR [Suspect]
     Indication: METASTASES TO LIVER
     Dosage: 10 MG, QD
     Route: 048
     Dates: start: 20110620
  6. XANAX [Concomitant]
     Indication: ANXIETY
     Dosage: 0.5 MG, Q 12 HR PRN
     Route: 048
     Dates: start: 20110623
  7. MORPHINE SULFATE [Concomitant]
     Indication: PAIN
     Dosage: 15 MG, Q 8 HR

REACTIONS (11)
  - DIARRHOEA [None]
  - PANCREATIC NEOPLASM [None]
  - PSEUDOCYST [None]
  - RASH PUSTULAR [None]
  - CHOLELITHIASIS [None]
  - TONGUE ULCERATION [None]
  - PANCREATIC DUCT DILATATION [None]
  - WEIGHT DECREASED [None]
  - MOUTH ULCERATION [None]
  - ABDOMINAL PAIN [None]
  - DISCOMFORT [None]
